FAERS Safety Report 8867285 (Version 1)
Quarter: 2012Q4

REPORT INFORMATION
  Report Type: 
  Country: US (occurrence: US)
  Receive Date: 20121025
  Receipt Date: 20121025
  Transmission Date: 20130627
  Serious: No
  Sender: FDA-Public Use
  Company Number: US-AMGEN-USASP2012015901

PATIENT
  Age: 53 Year
  Sex: Male
  Weight: 136.5 kg

DRUGS (5)
  1. ENBREL [Suspect]
     Indication: PRODUCT USED FOR UNKNOWN INDICATION
     Dosage: 50 mg, qwk
  2. QUINAPRIL [Concomitant]
     Dosage: 5 mg, UNK
  3. LEVOTHYROXIN [Concomitant]
     Dosage: 25 mug, UNK
  4. LEFLUNOMIDE [Concomitant]
     Dosage: 10 mg, UNK
  5. ASA [Concomitant]
     Dosage: 81 mg, UNK

REACTIONS (3)
  - Therapeutic response decreased [Unknown]
  - Pain [Unknown]
  - Swelling [Unknown]
